FAERS Safety Report 20734479 (Version 2)
Quarter: 2022Q2

REPORT INFORMATION
  Report Type: Spontaneous
  Country: JP (occurrence: JP)
  Receive Date: 20220421
  Receipt Date: 20220509
  Transmission Date: 20220721
  Serious: Yes (Other)
  Sender: FDA-Public Use
  Company Number: JP-MALLINCKRODT-T202201871

PATIENT
  Age: 65 Year
  Sex: Male
  Weight: 87 kg

DRUGS (1)
  1. INOMAX [Suspect]
     Active Substance: NITRIC OXIDE
     Indication: Acute respiratory distress syndrome
     Dosage: 20 PPM, INHALATION
     Route: 055

REACTIONS (9)
  - Acute respiratory distress syndrome [Unknown]
  - Condition aggravated [Unknown]
  - Tracheostomy [Unknown]
  - Chest tube insertion [Unknown]
  - Pulmonary bullectomy [Unknown]
  - Pneumothorax [Unknown]
  - Pulmonary bullae rupture [Unknown]
  - Product use in unapproved indication [Unknown]
  - Product use issue [Unknown]
